FAERS Safety Report 8801042 (Version 2)
Quarter: 2012Q4

REPORT INFORMATION
  Report Type: 
  Country: US (occurrence: US)
  Receive Date: 20120921
  Receipt Date: 20121008
  Transmission Date: 20130627
  Serious: Yes (Hospitalization)
  Sender: FDA-Public Use
  Company Number: US-GLAXOSMITHKLINE-A0994033A

PATIENT
  Age: 60 Year
  Sex: Male

DRUGS (2)
  1. FLOVENT [Suspect]
     Indication: PRODUCT USED FOR UNKNOWN INDICATION
     Dosage: 220MCG Unknown
     Route: 055
     Dates: start: 20120403
  2. VENTOLIN HFA [Suspect]
     Indication: PRODUCT USED FOR UNKNOWN INDICATION
     Dosage: 90MCG Unknown
     Route: 065
     Dates: start: 20120414

REACTIONS (1)
  - Condition aggravated [Unknown]
